FAERS Safety Report 12285599 (Version 1)
Quarter: 2016Q2

REPORT INFORMATION
  Report Type: Spontaneous
  Country: US (occurrence: US)
  Receive Date: 20160420
  Receipt Date: 20160420
  Transmission Date: 20160815
  Serious: No
  Sender: FDA-Public Use
  Company Number: US-BRISTOL-MYERS SQUIBB COMPANY-BMS-2016-029288

PATIENT
  Sex: Male

DRUGS (2)
  1. SPRYCEL [Suspect]
     Active Substance: DASATINIB
     Indication: CHRONIC MYELOID LEUKAEMIA
     Dosage: 100 MG, UNK
     Route: 065
     Dates: start: 2013
  2. SPRYCEL [Suspect]
     Active Substance: DASATINIB
     Dosage: 80 MG, UNK
     Route: 065
     Dates: start: 201503

REACTIONS (8)
  - Fatigue [Unknown]
  - Arthralgia [Unknown]
  - Dyspnoea [Unknown]
  - Feeling abnormal [Unknown]
  - Headache [Unknown]
  - Palpitations [Unknown]
  - Memory impairment [Unknown]
  - Blood glucose increased [Unknown]
